FAERS Safety Report 19738970 (Version 6)
Quarter: 2022Q4

REPORT INFORMATION
  Report Type: Spontaneous
  Country: US (occurrence: US)
  Receive Date: 20210824
  Receipt Date: 20221122
  Transmission Date: 20230113
  Serious: No
  Sender: FDA-Public Use
  Company Number: US-AIMMUNE THERAPEUTICS, INC.-2021AIMT00501

PATIENT

DRUGS (2)
  1. PALFORZIA [Suspect]
     Active Substance: PEANUT
     Indication: Food allergy
     Dosage: 12 MG, 1X/DAY
     Route: 048
     Dates: start: 20210805, end: 20210815
  2. PALFORZIA [Suspect]
     Active Substance: PEANUT
     Dosage: 6 MG, 1X/DAY
     Route: 048
     Dates: start: 20210818, end: 20210829

REACTIONS (3)
  - Abdominal pain upper [Unknown]
  - Nausea [Unknown]
  - Abdominal discomfort [Unknown]

NARRATIVE: CASE EVENT DATE: 20210801
